FAERS Safety Report 17868185 (Version 2)
Quarter: 2020Q3

REPORT INFORMATION
  Report Type: Spontaneous
  Country: GB (occurrence: GB)
  Receive Date: 20200605
  Receipt Date: 20200803
  Transmission Date: 20201103
  Serious: Yes (Death, Hospitalization)
  Sender: FDA-Public Use
  Company Number: GB-BIOGEN-2020BI00880003

PATIENT
  Age: 53 Year
  Sex: Male

DRUGS (1)
  1. TYSABRI [Suspect]
     Active Substance: NATALIZUMAB
     Indication: ACUTE DISSEMINATED ENCEPHALOMYELITIS
     Route: 042

REACTIONS (9)
  - Muscular weakness [Unknown]
  - Encephalomyelitis [Fatal]
  - Dysarthria [Unknown]
  - Dysphagia [Unknown]
  - Urinary tract infection [Recovered/Resolved]
  - Facial paresis [Unknown]
  - Off label use [Unknown]
  - Confusional state [Recovered/Resolved]
  - Hyponatraemia [Recovered/Resolved]
